FAERS Safety Report 24647196 (Version 1)
Quarter: 2024Q4

REPORT INFORMATION
  Report Type: Spontaneous
  Country: ES (occurrence: ES)
  Receive Date: 20241121
  Receipt Date: 20241121
  Transmission Date: 20250115
  Serious: Yes (Death)
  Sender: PFIZER
  Company Number: ES-ROCHE-3542226

PATIENT
  Age: 59 Year
  Sex: Male
  Weight: 77.7 kg

DRUGS (7)
  1. BEVACIZUMAB [Suspect]
     Active Substance: BEVACIZUMAB
     Indication: Hepatocellular carcinoma
     Dosage: 1155 MG, EVERY 3 WEEKS, RECEIVED MOST RECENT DOSE OF BEVACIZUMAB
     Route: 042
     Dates: start: 20240229
  2. ATEZOLIZUMAB [Suspect]
     Active Substance: ATEZOLIZUMAB
     Indication: Hepatocellular carcinoma
     Dosage: 1200 MG, EVERY 3 WEEKS, RECEIVED MOST RECENT DOSE OF ATEZOLIZUMAB
     Route: 042
     Dates: start: 20240229
  3. TIRAGOLUMAB [Suspect]
     Active Substance: TIRAGOLUMAB
     Indication: Hepatocellular carcinoma
     Dosage: EVERY 3 WEEKS, RECEIVED MOST RECENT DOSE OF BLINDED TIRAGOLUMAB
     Route: 042
     Dates: start: 20240229
  4. AMLODIPINE BESYLATE [Concomitant]
     Active Substance: AMLODIPINE BESYLATE
     Dosage: 10 MG, 1X/DAY
     Route: 048
     Dates: start: 20240212, end: 20240408
  5. CARVEDILOL [Concomitant]
     Active Substance: CARVEDILOL
     Indication: Hypertension
     Dosage: 6.25 MG, FREQ: 0.5 DAY
     Route: 048
     Dates: start: 20240212
  6. METFORMIN HYDROCHLORIDE [Concomitant]
     Active Substance: METFORMIN HYDROCHLORIDE
     Indication: Type 2 diabetes mellitus
     Dosage: 850 MG, FREQ: 0.5 DAY
     Route: 048
     Dates: start: 20210726, end: 20240318
  7. OMEPRAZOLE [Concomitant]
     Active Substance: OMEPRAZOLE
     Dosage: 20 MG, FREQ: 0.5 DAY
     Route: 048
     Dates: start: 20240212, end: 20241105

REACTIONS (3)
  - Death [Fatal]
  - Infusion related reaction [Recovered/Resolved]
  - Off label use [Unknown]

NARRATIVE: CASE EVENT DATE: 20240229
